FAERS Safety Report 6410821-1 (Version None)
Quarter: 2009Q4

REPORT INFORMATION
  Report Type: 
  Country: None (occurrence: None)
  Receive Date: 20091020
  Receipt Date: 20091020
  Transmission Date: 20100525
  Serious: No
  Sender: FDA-Public Use
  Company Number: None

PATIENT
  Age: 42 Year
  Sex: Male
  Weight: 90.7194 kg

DRUGS (1)
  1. DEXTROAMPHETAMINE [Suspect]
     Indication: ATTENTION DEFICIT/HYPERACTIVITY DISORDER
     Dosage: 15MG 2 X DAY PO
     Route: 048
     Dates: start: 20091008, end: 20091019

REACTIONS (8)
  - ABDOMINAL PAIN [None]
  - DRUG INEFFECTIVE [None]
  - FATIGUE [None]
  - FEELING ABNORMAL [None]
  - HEART RATE INCREASED [None]
  - OCULAR HYPERAEMIA [None]
  - PRODUCT COUNTERFEIT [None]
  - PRODUCT MEASURED POTENCY ISSUE [None]
